FAERS Safety Report 19143082 (Version 1)
Quarter: 2021Q2

REPORT INFORMATION
  Report Type: Spontaneous
  Country: US (occurrence: US)
  Receive Date: 20210416
  Receipt Date: 20210416
  Transmission Date: 20210717
  Serious: Yes (Death)
  Sender: FDA-Public Use
  Company Number: US-ROCHE-2809738

PATIENT
  Age: 78 Year
  Sex: Female

DRUGS (17)
  1. SIMVASTATIN. [Concomitant]
     Active Substance: SIMVASTATIN
  2. FLUTICASONE. [Concomitant]
     Active Substance: FLUTICASONE
  3. PEGASYS [Suspect]
     Active Substance: PEGINTERFERON ALFA-2A
     Indication: HAEMOLYTIC ANAEMIA
     Route: 058
     Dates: start: 202008, end: 202103
  4. HYDROXYZINE HCL [Concomitant]
     Active Substance: HYDROXYZINE HYDROCHLORIDE
  5. ONDANSETRON [Concomitant]
     Active Substance: ONDANSETRON
  6. DOXYCYCLINE MONOHYDRATE [Concomitant]
     Active Substance: DOXYCYCLINE
  7. DULOXETINE. [Concomitant]
     Active Substance: DULOXETINE
  8. DULOXETINE. [Concomitant]
     Active Substance: DULOXETINE
  9. NIFEDIPINE. [Concomitant]
     Active Substance: NIFEDIPINE
  10. OXYCODONE/APAP [Concomitant]
     Active Substance: ACETAMINOPHEN\OXYCODONE HYDROCHLORIDE
     Dosage: 10?325 MG
  11. TRIFLURIDINE. [Concomitant]
     Active Substance: TRIFLURIDINE
  12. ISOSORBIDE MONONITRATE. [Concomitant]
     Active Substance: ISOSORBIDE MONONITRATE
  13. GABAPENTIN. [Concomitant]
     Active Substance: GABAPENTIN
  14. METOPROLOL. [Concomitant]
     Active Substance: METOPROLOL
  15. OMEPRAZOLE. [Concomitant]
     Active Substance: OMEPRAZOLE
  16. SPIRONOLACTON [Concomitant]
     Active Substance: SPIRONOLACTONE
  17. CYCLOBENZAPRINE. [Concomitant]
     Active Substance: CYCLOBENZAPRINE

REACTIONS (1)
  - Death [Fatal]

NARRATIVE: CASE EVENT DATE: 20210331
